FAERS Safety Report 8153708-9 (Version None)
Quarter: 2012Q1

REPORT INFORMATION
  Report Type: 
  Country: None (occurrence: None)
  Receive Date: 20120221
  Receipt Date: 20120213
  Transmission Date: 20120608
  Serious: Yes (Other)
  Sender: FDA-Public Use
  Company Number: US-ROXANE LABORATORIES, INC.-2012-RO-00653RO

PATIENT
  Age: 57 Year
  Sex: Male

DRUGS (4)
  1. BUPRENORPHINE HCL [Suspect]
     Indication: DRUG DEPENDENCE
  2. METHADONE HCL [Suspect]
     Dosage: 60 MG
  3. METHADONE HCL [Suspect]
     Indication: DRUG WITHDRAWAL MAINTENANCE THERAPY
     Dosage: 100 MG
  4. METHADONE HCL [Suspect]
     Dosage: 10 MG

REACTIONS (4)
  - LONG QT SYNDROME [None]
  - STAPHYLOCOCCAL BACTERAEMIA [None]
  - TORSADE DE POINTES [None]
  - DRUG INEFFECTIVE [None]
